FAERS Safety Report 9745059 (Version 1)
Quarter: 2013Q4

REPORT INFORMATION
  Report Type: Spontaneous
  Country: FR (occurrence: FR)
  Receive Date: 20131211
  Receipt Date: 20131211
  Transmission Date: 20140711
  Serious: Yes (Hospitalization)
  Sender: FDA-Public Use
  Company Number: FR-009507513-1312FRA000508

PATIENT
  Age: 81 Year
  Sex: Female

DRUGS (4)
  1. SINEMET 100 MG / 10 MG COMPRIME SECABLE [Suspect]
     Dosage: 1 DF, BID
     Route: 048
     Dates: end: 20130915
  2. LEVOTHYROX [Suspect]
     Dosage: 125 MICROGRAM, QD
     Route: 048
     Dates: end: 20130915
  3. LEVOTHYROX [Suspect]
     Dosage: 100 UNK, UNK
     Route: 048
  4. METFORMIN [Suspect]
     Dosage: UNK
     Route: 048
     Dates: start: 201307, end: 20130915

REACTIONS (4)
  - Asthenia [Recovered/Resolved]
  - Decreased appetite [Recovered/Resolved]
  - Food aversion [Recovered/Resolved]
  - Headache [Not Recovered/Not Resolved]
